FAERS Safety Report 5572914-0 (Version None)
Quarter: 2007Q4

REPORT INFORMATION
  Report Type: 
  Country: None (occurrence: None)
  Receive Date: 20071219
  Receipt Date: 20071219
  Transmission Date: 20080405
  Serious: No
  Sender: FDA-Public Use
  Company Number: None

PATIENT
  Age: 52 Year
  Sex: Male
  Weight: 90.7194 kg

DRUGS (5)
  1. ARIPIPRAZOLE [Suspect]
     Dosage: 15MG  PO
     Route: 048
     Dates: start: 20070706, end: 20070709
  2. BENZTROPINE [Concomitant]
  3. HALOPERIDOL [Concomitant]
  4. PREDNISOLONE SUSP OPTH [Concomitant]
  5. TMC CREAM [Concomitant]

REACTIONS (2)
  - NAUSEA [None]
  - VOMITING [None]
